FAERS Safety Report 24280435 (Version 1)
Quarter: 2024Q3

REPORT INFORMATION
  Report Type: Spontaneous
  Country: CN (occurrence: CN)
  Receive Date: 20240904
  Receipt Date: 20240904
  Transmission Date: 20241016
  Serious: Yes (Life-Threatening)
  Sender: SANOFI AVENTIS
  Company Number: CN-SA-2024SA255404

PATIENT
  Age: 71 Year
  Sex: Male
  Weight: 40 kg

DRUGS (2)
  1. OXALIPLATIN [Suspect]
     Active Substance: OXALIPLATIN
     Indication: Chemotherapy
     Dosage: 200 MG, 1X
     Route: 041
     Dates: start: 20240827, end: 20240827
  2. OXYGEN [Concomitant]
     Active Substance: OXYGEN
     Dosage: UNK
     Route: 055
     Dates: start: 20240827

REACTIONS (4)
  - Palpitations [Recovering/Resolving]
  - Vomiting [Recovering/Resolving]
  - Chest discomfort [Recovering/Resolving]
  - Dyspnoea [Recovering/Resolving]

NARRATIVE: CASE EVENT DATE: 20240827
